FAERS Safety Report 22186969 (Version 1)
Quarter: 2023Q2

REPORT INFORMATION
  Report Type: Spontaneous
  Country: US (occurrence: None)
  Receive Date: 20230407
  Receipt Date: 20230407
  Transmission Date: 20230721
  Serious: Yes (Death)
  Sender: FDA-Public Use
  Company Number: None

PATIENT
  Age: 76 Year
  Sex: Female

DRUGS (15)
  1. OCTREOTIDE [Suspect]
     Active Substance: OCTREOTIDE
     Indication: Product used for unknown indication
     Dosage: OTHER QUANTITY : 50MCG/1ML;?
     Route: 058
  2. AMITRPTYLINE [Concomitant]
  3. BIOTIN [Concomitant]
  4. CALCIUM [Concomitant]
  5. HYDROCHLOROTHIAZIDE [Concomitant]
     Active Substance: HYDROCHLOROTHIAZIDE
  6. LANREOTIDE [Concomitant]
     Active Substance: LANREOTIDE
  7. LOMOTIL [Concomitant]
  8. LOSARTAN [Concomitant]
     Active Substance: LOSARTAN
  9. MAGNESIUM [Concomitant]
  10. MELATONIN [Concomitant]
     Active Substance: MELATONIN
  11. SUCRALFATE [Concomitant]
     Active Substance: SUCRALFATE
  12. VITAMIN A [Concomitant]
  13. THIAMINE HYDROCHLORIDE [Concomitant]
     Active Substance: THIAMINE HYDROCHLORIDE
  14. VITAMIN C [Concomitant]
     Active Substance: ASCORBIC ACID
  15. VITAMIN D + NEUROENDOCRINE CANCER [Concomitant]

REACTIONS (1)
  - Death [None]

NARRATIVE: CASE EVENT DATE: 20230320
